FAERS Safety Report 10091010 (Version 2)
Quarter: 2014Q2

REPORT INFORMATION
  Report Type: Report from Study
  Country: US (occurrence: US)
  Receive Date: 20140421
  Receipt Date: 20140506
  Transmission Date: 20141212
  Serious: Yes (Hospitalization)
  Sender: FDA-Public Use
  Company Number: US-ACTELION-A-NJ2014-97509

PATIENT
  Age: 74 Year
  Sex: Female

DRUGS (5)
  1. TRACLEER [Suspect]
     Indication: PULMONARY ARTERIAL HYPERTENSION
     Dosage: UNK
     Route: 048
  2. ACE INHIBITORS [Suspect]
  3. SILDENAFIL [Concomitant]
  4. COUMADIN [Concomitant]
  5. TYVASO [Concomitant]

REACTIONS (2)
  - Blood potassium increased [Recovered/Resolved]
  - Dehydration [Recovered/Resolved]
